FAERS Safety Report 5609372-3 (Version None)
Quarter: 2008Q1

REPORT INFORMATION
  Report Type: 
  Country: None (occurrence: None)
  Receive Date: 20080131
  Receipt Date: 20080121
  Transmission Date: 20080703
  Serious: Yes (Hospitalization, Other)
  Sender: FDA-Public Use
  Company Number: US-ROCHE-526163

PATIENT
  Age: 61 Year
  Sex: Female

DRUGS (5)
  1. PEG-INTERFERON A-2A (RO 25-8310) [Suspect]
     Route: 065
     Dates: start: 20070404
  2. PEG-INTERFERON A-2A (RO 25-8310) [Suspect]
     Route: 065
  3. PEG-INTERFERON A-2A (RO 25-8310) [Suspect]
     Dosage: FORM REPORTED: PRE-FILLED SYRINGE (PFS)
     Route: 065
  4. RIBAVIRIN [Suspect]
     Route: 065
     Dates: start: 20070404
  5. RIBAVIRIN [Suspect]
     Route: 065

REACTIONS (4)
  - FULL BLOOD COUNT DECREASED [None]
  - SYNCOPE [None]
  - THYROID FUNCTION TEST ABNORMAL [None]
  - WHITE BLOOD CELL COUNT DECREASED [None]
